APPROVED DRUG PRODUCT: PAXIL CR
Active Ingredient: PAROXETINE HYDROCHLORIDE
Strength: EQ 12.5MG BASE
Dosage Form/Route: TABLET, EXTENDED RELEASE;ORAL
Application: N020936 | Product #001 | TE Code: AB
Applicant: APOTEX INC
Approved: Feb 16, 1999 | RLD: Yes | RS: No | Type: RX